FAERS Safety Report 20756932 (Version 3)
Quarter: 2022Q2

REPORT INFORMATION
  Report Type: Spontaneous
  Country: JP (occurrence: JP)
  Receive Date: 20220427
  Receipt Date: 20220518
  Transmission Date: 20220721
  Serious: Yes (Other)
  Sender: FDA-Public Use
  Company Number: JP-KYOWAKIRIN-2022AKK005863

PATIENT
  Age: 78 Year
  Sex: Male

DRUGS (3)
  1. PEGFILGRASTIM [Suspect]
     Active Substance: PEGFILGRASTIM
     Indication: Neutrophil count decreased
     Dosage: 3.6 MILLIGRAM
     Route: 058
     Dates: start: 20220414, end: 20220414
  2. PEGFILGRASTIM [Suspect]
     Active Substance: PEGFILGRASTIM
     Indication: Colony stimulating factor therapy
     Dosage: UNK
     Route: 065
  3. CABAZITAXEL [Suspect]
     Active Substance: CABAZITAXEL
     Indication: Prostate cancer
     Dosage: UNK
     Route: 042
     Dates: start: 20220412, end: 20220412

REACTIONS (4)
  - Therapeutic procedure [Unknown]
  - Febrile neutropenia [Recovered/Resolved]
  - Off label use [Unknown]
  - Colony stimulating factor therapy [Unknown]

NARRATIVE: CASE EVENT DATE: 20220419
